FAERS Safety Report 12733791 (Version 1)
Quarter: 2016Q3

REPORT INFORMATION
  Report Type: Report from Study
  Country: US (occurrence: US)
  Receive Date: 20160912
  Receipt Date: 20160912
  Transmission Date: 20161109
  Serious: Yes (Hospitalization, Other)
  Sender: FDA-Public Use
  Company Number: US-ROCHE-782590

PATIENT
  Age: 82 Year
  Sex: Male
  Weight: 91.2 kg

DRUGS (5)
  1. DOCETAXEL. [Suspect]
     Active Substance: DOCETAXEL
     Indication: PROSTATE CANCER METASTATIC
     Dosage: OVER 60 MINUTES ON DAY 1. CYCLE: 21 DAYS.?DOSE: 155 MG TO 169 MG
     Route: 042
     Dates: start: 20101025
  2. BEVACIZUMAB [Suspect]
     Active Substance: BEVACIZUMAB
     Indication: PROSTATE CANCER METASTATIC
     Dosage: OVER 30-90 MINUTES ON DAY 1. CYCLE: 21 DAYS. LAST DRUG OF THE DRUG: 28 FEBRUARY 2011.?DOSE: 1380 MG
     Route: 042
  3. LENALIDOMIDE [Suspect]
     Active Substance: LENALIDOMIDE
     Indication: PROSTATE CANCER METASTATIC
     Dosage: ON DAYS 1-14. CYCLE: 21 DAYS. LAST DOSE OF THE DRUG: 3 MARCH 2011.?DOSE: 140 MG TO 350 MG
     Route: 048
  4. PREDNISONE. [Suspect]
     Active Substance: PREDNISONE
     Indication: PROSTATE CANCER METASTATIC
     Dosage: CYCLE: 21 DAYS?DOSE: 105 MG TO 1930 MG.
     Route: 048
     Dates: start: 20101025
  5. LENALIDOMIDE [Suspect]
     Active Substance: LENALIDOMIDE
     Dosage: DOSE REDUCED.
     Route: 048

REACTIONS (6)
  - Weight decreased [Unknown]
  - Delirium [Unknown]
  - Platelet count decreased [Recovered/Resolved]
  - Platelet count decreased [Unknown]
  - Confusional state [Unknown]
  - Anaemia [Unknown]

NARRATIVE: CASE EVENT DATE: 20110228
